FAERS Safety Report 5230856-4 (Version None)
Quarter: 2007Q1

REPORT INFORMATION
  Report Type: 
  Country: None (occurrence: None)
  Receive Date: 20070206
  Receipt Date: 20070129
  Transmission Date: 20070707
  Serious: Yes (Hospitalization)
  Sender: FDA-Public Use
  Company Number: DE-BAYER-200611614BVD

PATIENT
  Age: 78 Year
  Sex: Female
  Weight: 85 kg

DRUGS (15)
  1. AVELOX [Suspect]
     Indication: PNEUMONIA
     Route: 042
     Dates: start: 20061122, end: 20061126
  2. FORTUM [Suspect]
     Indication: PNEUMONIA
     Route: 042
     Dates: start: 20061122, end: 20061126
  3. AMPICILLIN [Suspect]
     Indication: PNEUMONIA
     Route: 042
     Dates: start: 20061122, end: 20061126
  4. VANCOMYCIN HCL [Concomitant]
     Indication: DRUG USE FOR UNKNOWN INDICATION
     Route: 042
  5. PANTOZOL [Concomitant]
     Route: 042
  6. MUCOSOLVAN [Concomitant]
     Route: 042
  7. HAES [Concomitant]
     Route: 042
  8. STEROFUNDIN [Concomitant]
     Route: 042
  9. DEXTROSE 5% [Concomitant]
     Route: 042
  10. RED BLOOD CELLS [Concomitant]
     Route: 042
  11. ARTERENOL-P [Concomitant]
     Route: 042
  12. TRAMADOL HCL [Concomitant]
  13. VOMEX-P [Concomitant]
  14. HEPARIN-P [Concomitant]
  15. INSULIN-P [Concomitant]

REACTIONS (2)
  - BLOOD CREATINE PHOSPHOKINASE INCREASED [None]
  - RHABDOMYOLYSIS [None]
